FAERS Safety Report 21983489 (Version 8)
Quarter: 2024Q3

REPORT INFORMATION
  Report Type: Report from Study
  Country: NL (occurrence: NL)
  Receive Date: 20230213
  Receipt Date: 20240808
  Transmission Date: 20241016
  Serious: Yes (Hospitalization, Other)
  Sender: ABBVIE
  Company Number: NL-ABBVIE-4304391

PATIENT
  Sex: Male

DRUGS (19)
  1. CARBIDOPA\LEVODOPA [Suspect]
     Active Substance: CARBIDOPA\LEVODOPA
     Indication: Parkinson^s disease
     Dosage: MD:4.0ML; CD:3.0ML/H; AFTERNOON DOSAGE:3.6ML DURATION TEXT: REMAINS AT 16 HOURS
     Route: 050
     Dates: start: 20230302, end: 20230313
  2. CARBIDOPA\LEVODOPA [Suspect]
     Active Substance: CARBIDOPA\LEVODOPA
     Dosage: MD:8.0ML; CD:2.2ML/H; ED:1.0ML
     Route: 050
     Dates: start: 20220919
  3. CARBIDOPA\LEVODOPA [Suspect]
     Active Substance: CARBIDOPA\LEVODOPA
     Dosage: MD:5.0ML; CD:3.1ML/H; ED:3.0ML;?DURATION TEXT: REMAINS AT 16 HOURS
     Route: 050
  4. CARBIDOPA\LEVODOPA [Suspect]
     Active Substance: CARBIDOPA\LEVODOPA
     Dosage: MD:7.0ML; CD:3.3ML/H; ED: 3.0ML, REMAINS AT 16 HOURS
     Route: 050
     Dates: start: 20231212, end: 20240319
  5. CARBIDOPA\LEVODOPA [Suspect]
     Active Substance: CARBIDOPA\LEVODOPA
     Dosage: MD:6.0ML; CD:3.3ML/H; ED: 3.0ML DURATION TEXT: REMAINS AT 16 HOURS
     Route: 050
     Dates: start: 20230406, end: 20230719
  6. CARBIDOPA\LEVODOPA [Suspect]
     Active Substance: CARBIDOPA\LEVODOPA
     Dosage: MD:8.0ML; CD:3.1ML/H; ED:3.0ML;?DURATION TEXT: REMAINS AT 16 HOURS
     Route: 050
  7. CARBIDOPA\LEVODOPA [Suspect]
     Active Substance: CARBIDOPA\LEVODOPA
     Dosage: MD:7.0ML; CD:3.3 ML/H; ED:3.0ML?DURATION TEXT: REMAINS AT 16 HOURS
     Route: 050
  8. CARBIDOPA\LEVODOPA [Suspect]
     Active Substance: CARBIDOPA\LEVODOPA
     Dosage: MD:7.0ML; CD:3.3ML/H; ED: 3.0ML?DURATION TEXT: REMAINS AT 16 HOURS
     Route: 050
     Dates: start: 20240731
  9. CARBIDOPA\LEVODOPA [Suspect]
     Active Substance: CARBIDOPA\LEVODOPA
     Dosage: MD:8.0ML; CD:2.2ML/H; ED:1.0ML;?DURATION TEXT: REMAINS AT 16 HOURS
     Route: 050
  10. CARBIDOPA\LEVODOPA [Suspect]
     Active Substance: CARBIDOPA\LEVODOPA
     Dosage: MD:7.0ML; CD:3.3ML/H; ED: 3.0ML
     Route: 050
     Dates: start: 20240319, end: 20240731
  11. CARBIDOPA\LEVODOPA [Suspect]
     Active Substance: CARBIDOPA\LEVODOPA
     Dosage: MD:5.0ML; CD:3.1ML/H; ED:2.5ML;?DURATION TEXT: REMAINS AT 16 HOURS
     Route: 050
  12. CARBIDOPA\LEVODOPA [Suspect]
     Active Substance: CARBIDOPA\LEVODOPA
     Dosage: MD:8.0ML; CD:3.1ML/H; ED:3.0ML;
     Route: 050
  13. CARBIDOPA\LEVODOPA [Suspect]
     Active Substance: CARBIDOPA\LEVODOPA
     Dosage: MD:8.0ML; CD:2.2ML/H; ED:1.0ML;?DURATION TEXT: REMAINS AT 16 HOURS
     Route: 050
  14. CARBIDOPA\LEVODOPA [Suspect]
     Active Substance: CARBIDOPA\LEVODOPA
     Dosage: MD:4.5ML; CD:3.3ML/H; ED: 3.0MLDURATION TEXT: REMAINS AT 16 HOURS
     Route: 050
     Dates: start: 20230313, end: 20230321
  15. CARBIDOPA\LEVODOPA [Suspect]
     Active Substance: CARBIDOPA\LEVODOPA
     Dosage: MD:4.0ML; CD:3.1ML/H; ED:3.0ML?DURATION TEXT: REMAINS AT 16 HOURS
     Route: 050
  16. CARBIDOPA\LEVODOPA [Suspect]
     Active Substance: CARBIDOPA\LEVODOPA
     Dosage: MD:5.0ML DURATION TEXT: REMAINS AT 16 HOURS
     Route: 050
     Dates: start: 20230321, end: 20230406
  17. CARBIDOPA\LEVODOPA [Suspect]
     Active Substance: CARBIDOPA\LEVODOPA
     Route: 050
     Dates: start: 20230719, end: 20231212
  18. BENSERAZIDE HYDROCHLORIDE\LEVODOPA [Concomitant]
     Active Substance: BENSERAZIDE HYDROCHLORIDE\LEVODOPA
     Indication: Product used for unknown indication
     Dosage: TIME INTERVAL: 0.33333333 DAYS: HBS
  19. ROPINIROLE [Concomitant]
     Active Substance: ROPINIROLE
     Indication: Product used for unknown indication

REACTIONS (27)
  - Volvulus of small bowel [Recovered/Resolved]
  - Knee operation [Recovered/Resolved]
  - Pain [Unknown]
  - Device placement issue [Recovered/Resolved]
  - Volvulus of small bowel [Recovered/Resolved]
  - Constipation [Recovered/Resolved]
  - Discouragement [Not Recovered/Not Resolved]
  - Volvulus [Recovered/Resolved]
  - Constipation [Recovering/Resolving]
  - Abdominal discomfort [Unknown]
  - Volvulus [Unknown]
  - Dyskinesia [Not Recovered/Not Resolved]
  - Aphasia [Not Recovered/Not Resolved]
  - Tremor [Not Recovered/Not Resolved]
  - On and off phenomenon [Not Recovered/Not Resolved]
  - Bradykinesia [Not Recovered/Not Resolved]
  - Muscle rigidity [Not Recovered/Not Resolved]
  - Posture abnormal [Not Recovered/Not Resolved]
  - Parkinsonian gait [Not Recovered/Not Resolved]
  - Gastrointestinal motility disorder [Recovered/Resolved]
  - Gastrointestinal motility disorder [Recovering/Resolving]
  - Tension [Not Recovered/Not Resolved]
  - Parkinson^s disease [Recovering/Resolving]
  - Hypokinesia [Unknown]
  - Nocturia [Not Recovered/Not Resolved]
  - Neurogenic bowel [Not Recovered/Not Resolved]
  - Neurogenic bowel [Not Recovered/Not Resolved]

NARRATIVE: CASE EVENT DATE: 20230101
